FAERS Safety Report 9860147 (Version 2)
Quarter: 2015Q1

REPORT INFORMATION
  Report Type: Report from Study
  Country: CA (occurrence: CA)
  Receive Date: 20140201
  Receipt Date: 20150116
  Transmission Date: 20150721
  Serious: Yes (Hospitalization)
  Sender: FDA-Public Use
  Company Number: CA-ROCHE-1340177

PATIENT
  Age: 71 Year
  Sex: Female
  Weight: 86.2 kg

DRUGS (26)
  1. PREDNISONE. [Concomitant]
     Active Substance: PREDNISONE
  2. LEVOTHYROXINE [Concomitant]
     Active Substance: LEVOTHYROXINE
  3. NYSTATIN. [Concomitant]
     Active Substance: NYSTATIN
     Dosage: NYSTATIN CREAM AND NYSTATIN ORAL
     Route: 065
  4. BISACODYL. [Concomitant]
     Active Substance: BISACODYL
  5. VITAMIN B12 [Concomitant]
     Active Substance: CYANOCOBALAMIN
  6. RITUXAN [Suspect]
     Active Substance: RITUXIMAB
     Indication: RHEUMATOID ARTHRITIS
     Dosage: FREQUENCY:  DAY 1, DAY 15
     Route: 042
     Dates: start: 20120605, end: 20120619
  7. ACTEMRA [Suspect]
     Active Substance: TOCILIZUMAB
     Indication: RHEUMATOID ARTHRITIS
     Route: 042
     Dates: start: 20140219
  8. ACETAMINOPHEN. [Concomitant]
     Active Substance: ACETAMINOPHEN
     Indication: PREMEDICATION
     Route: 048
     Dates: start: 20120605, end: 20120619
  9. SYNTHROID [Concomitant]
     Active Substance: LEVOTHYROXINE SODIUM
  10. GABAPENTIN. [Concomitant]
     Active Substance: GABAPENTIN
  11. METFORMIN [Concomitant]
     Active Substance: METFORMIN HYDROCHLORIDE
     Route: 065
  12. SERTRALINE [Concomitant]
     Active Substance: SERTRALINE HYDROCHLORIDE
  13. METHYLPREDNISOLONE. [Concomitant]
     Active Substance: METHYLPREDNISOLONE
     Indication: PREMEDICATION
     Route: 042
     Dates: start: 20120605, end: 20120619
  14. DOCUSATE SODIUM. [Concomitant]
     Active Substance: DOCUSATE SODIUM
  15. TYLENOL WITH CODEINE [Concomitant]
     Active Substance: ACETAMINOPHEN\CODEINE PHOSPHATE
  16. CLOTRIMADERM [Concomitant]
  17. BUDESONIDE. [Concomitant]
     Active Substance: BUDESONIDE
  18. BETAHISTINE [Concomitant]
     Active Substance: BETAHISTINE
  19. ACTEMRA [Suspect]
     Active Substance: TOCILIZUMAB
     Route: 042
     Dates: start: 20141110
  20. MORPHINE [Concomitant]
     Active Substance: MORPHINE
  21. DIPHENHYDRAMINE HCL [Concomitant]
     Active Substance: DIPHENHYDRAMINE HYDROCHLORIDE
     Indication: PREMEDICATION
     Dosage: AS PER PIR
     Route: 042
     Dates: start: 20120605, end: 20120619
  22. DITROPAN [Concomitant]
     Active Substance: OXYBUTYNIN CHLORIDE
  23. ZOPICLONE [Concomitant]
     Active Substance: ZOPICLONE
  24. PANTOLOC [Concomitant]
     Active Substance: PANTOPRAZOLE SODIUM
  25. APO-SALVENT [Concomitant]
     Active Substance: ALBUTEROL
  26. TERBUTALINE [Concomitant]
     Active Substance: TERBUTALINE

REACTIONS (4)
  - Musculoskeletal chest pain [Unknown]
  - Dyspnoea [Unknown]
  - Productive cough [Unknown]
  - Wheezing [Unknown]

NARRATIVE: CASE EVENT DATE: 20150115
